FAERS Safety Report 5467460-9 (Version None)
Quarter: 2007Q3

REPORT INFORMATION
  Report Type: 
  Country: None (occurrence: None)
  Receive Date: 20070925
  Receipt Date: 20070914
  Transmission Date: 20080115
  Serious: Yes (Life-Threatening)
  Sender: FDA-Public Use
  Company Number: JP-SHR-JP-2007-035017

PATIENT
  Age: 42 Year
  Sex: Female
  Weight: 54 kg

DRUGS (15)
  1. BETASERON [Suspect]
     Indication: MULTIPLE SCLEROSIS
     Dosage: 8 MIU, EVERY 2D
     Route: 058
     Dates: start: 20010401, end: 20040301
  2. BETASERON [Suspect]
     Dosage: 8 MIU, EVERY 3D
     Route: 058
     Dates: start: 20040301, end: 20041201
  3. BETASERON [Suspect]
     Dosage: 8 MIU, EVERY 4D
     Route: 058
     Dates: start: 20041201, end: 20050301
  4. BETASERON [Suspect]
     Dosage: 8 MIU, EVERY 5D
     Route: 058
     Dates: start: 20050301, end: 20051101
  5. BETASERON [Suspect]
     Dosage: 8 MIUX2/3, EVERY 5D
     Route: 058
     Dates: start: 20051101, end: 20070401
  6. PREDONINE [Concomitant]
     Indication: MULTIPLE SCLEROSIS
     Dosage: UNK, 20-5 MG/DAY
     Route: 048
     Dates: end: 20020501
  7. PREDONINE [Concomitant]
     Dosage: UNK, 30-10 MG/DAY
     Route: 048
     Dates: start: 20070401
  8. METHYCOBAL [Concomitant]
     Indication: MULTIPLE SCLEROSIS
     Dosage: 1.5 MG, 1X/DAY
     Route: 048
     Dates: end: 20000201
  9. JUVELA NICOTINATE [Concomitant]
     Indication: MULTIPLE SCLEROSIS
     Dosage: .6 G, 1X/DAY
     Route: 048
     Dates: end: 20000201
  10. SUCRALFATE [Concomitant]
     Dosage: 3 G, 1X/DAY
     Route: 048
     Dates: end: 20000201
  11. FAMOTIDINE [Concomitant]
     Dosage: 20 MG, 1X/DAY
     Route: 048
     Dates: end: 20030701
  12. ROCALTROL [Concomitant]
     Indication: OSTEOPOROSIS PROPHYLAXIS
     Dosage: .25 A?G, 1X/DAY
     Route: 048
     Dates: start: 19981101, end: 20020501
  13. KETAS [Concomitant]
     Dosage: 30 MG, 1X/DAY
     Route: 048
     Dates: start: 20050301, end: 20070201
  14. BONALON [Concomitant]
     Dosage: 5 MG, 1X/DAY
     Route: 048
     Dates: start: 20070401
  15. ONE-ALPHA [Concomitant]
     Dosage: 1 A?G, 1X/DAY
     Route: 048
     Dates: start: 20070401

REACTIONS (1)
  - AUTOIMMUNE HEPATITIS [None]
